FAERS Safety Report 11296507 (Version 1)
Quarter: 2015Q3

REPORT INFORMATION
  Report Type: Spontaneous
  Country: US (occurrence: US)
  Receive Date: 20150722
  Receipt Date: 20150722
  Transmission Date: 20151125
  Serious: No
  Sender: FDA-Public Use
  Company Number: US-ELI_LILLY_AND_COMPANY-US201004000255

PATIENT
  Age: 66 Year
  Sex: Female
  Weight: 61.68 kg

DRUGS (1)
  1. EFFIENT [Suspect]
     Active Substance: PRASUGREL HYDROCHLORIDE
     Dosage: 5 MG, DAILY (1/D)
     Route: 048

REACTIONS (5)
  - Fear [Unknown]
  - Ecchymosis [Unknown]
  - Nausea [Unknown]
  - Haemorrhage [Unknown]
  - Diarrhoea [Unknown]
